FAERS Safety Report 16362784 (Version 1)
Quarter: 2019Q2

REPORT INFORMATION
  Report Type: Report from Study
  Country: US (occurrence: US)
  Receive Date: 20190528
  Receipt Date: 20190528
  Transmission Date: 20190711
  Serious: Yes (Other)
  Sender: FDA-Public Use
  Company Number: US-JNJFOC-20190421318

PATIENT
  Age: 83 Year
  Sex: Female

DRUGS (2)
  1. IMBRUVICA [Suspect]
     Active Substance: IBRUTINIB
     Indication: HAIRY CELL LEUKAEMIA RECURRENT
     Route: 048
     Dates: start: 20190430, end: 201905
  2. IMBRUVICA [Suspect]
     Active Substance: IBRUTINIB
     Indication: HAIRY CELL LEUKAEMIA RECURRENT
     Route: 048
     Dates: start: 20190402

REACTIONS (12)
  - Haemarthrosis [Unknown]
  - White blood cell count abnormal [Not Recovered/Not Resolved]
  - Platelet count decreased [Unknown]
  - Joint warmth [Unknown]
  - Joint swelling [Unknown]
  - Arthralgia [Unknown]
  - Dyspepsia [Recovered/Resolved]
  - Off label use [Unknown]
  - Flatulence [Recovered/Resolved]
  - Fatigue [Unknown]
  - Product use in unapproved indication [Unknown]
  - Epicondylitis [Unknown]

NARRATIVE: CASE EVENT DATE: 2019
